FAERS Safety Report 20740697 (Version 1)
Quarter: 2022Q2

REPORT INFORMATION
  Report Type: Spontaneous
  Country: US (occurrence: None)
  Receive Date: 20220422
  Receipt Date: 20220422
  Transmission Date: 20220721
  Serious: Yes (Life-Threatening, Hospitalization, Disabling)
  Sender: FDA-Public Use
  Company Number: None

PATIENT
  Age: 52 Year
  Sex: Female
  Weight: 65.25 kg

DRUGS (10)
  1. PHENTERMINE [Suspect]
     Active Substance: PHENTERMINE
     Indication: Weight decreased
     Route: 048
     Dates: start: 20190620, end: 20190702
  2. DEXTROAMPHETAMINE [Suspect]
     Active Substance: DEXTROAMPHETAMINE
     Indication: Attention deficit hyperactivity disorder
     Dosage: FREQUENCY : EVERY DAY BEFORE NOON;?
     Route: 048
  3. DULOXETINE [Concomitant]
     Active Substance: DULOXETINE
  4. LAMOTRIGINE [Concomitant]
     Active Substance: LAMOTRIGINE
  5. LITHIUM [Concomitant]
     Active Substance: LITHIUM
  6. TOPIRAMATE [Concomitant]
     Active Substance: TOPIRAMATE
  7. OLANZAPINE [Concomitant]
     Active Substance: OLANZAPINE
  8. METOPROLOL [Concomitant]
     Active Substance: METOPROLOL
  9. ALPRAZOLAM [Concomitant]
     Active Substance: ALPRAZOLAM
  10. CLONAZEPAM [Concomitant]
     Active Substance: CLONAZEPAM

REACTIONS (2)
  - Irritability [None]
  - Suicide attempt [None]

NARRATIVE: CASE EVENT DATE: 20190702
